FAERS Safety Report 14814643 (Version 4)
Quarter: 2020Q3

REPORT INFORMATION
  Report Type: Report from Study
  Country: CN (occurrence: CN)
  Receive Date: 20180426
  Receipt Date: 20180725
  Transmission Date: 20201104
  Serious: Yes (Death)
  Sender: FDA-Public Use
  Company Number: CN-ROCHE-2112479

PATIENT
  Age: 48 Year
  Sex: Female
  Weight: 73 kg

DRUGS (14)
  1. METHYLPREDNISOLONE SODIUM SUCCINATE. [Concomitant]
     Active Substance: METHYLPREDNISOLONE SODIUM SUCCINATE
     Indication: WOUND INFECTION
     Route: 065
     Dates: start: 20180129, end: 20180412
  2. TRAMADOL HYDROCHLORIDE. [Concomitant]
     Active Substance: TRAMADOL HYDROCHLORIDE
     Indication: PAIN
     Route: 065
     Dates: start: 20170124
  3. PARECOXIB SODIUM. [Concomitant]
     Active Substance: PARECOXIB SODIUM
     Indication: WOUND INFECTION
     Route: 065
     Dates: start: 20180129, end: 20180412
  4. CEFACLOR. [Concomitant]
     Active Substance: CEFACLOR
     Indication: SEPSIS
     Route: 065
     Dates: start: 20180109, end: 20180412
  5. ALECTINIB. [Suspect]
     Active Substance: ALECTINIB
     Indication: NON-SMALL CELL LUNG CANCER
     Dosage: DATE OF MOST RECENT DOSE OF ALECTINIB PRIOR TO EVENT ONSET 03/APR/2018:600 MG
     Route: 048
     Dates: start: 20170124
  6. AMIKACIN. [Concomitant]
     Active Substance: AMIKACIN
     Indication: WOUND INFECTION
     Route: 065
     Dates: start: 20180129, end: 20180412
  7. VITAMIN B6 [Concomitant]
     Active Substance: PYRIDOXINE HYDROCHLORIDE
     Indication: WOUND INFECTION
     Route: 065
     Dates: start: 20180129, end: 20180412
  8. VITAMIN C [Concomitant]
     Active Substance: ASCORBIC ACID
     Indication: WOUND INFECTION
     Route: 065
     Dates: start: 20180129, end: 20180412
  9. LOSEC [Concomitant]
     Active Substance: OMEPRAZOLE
     Indication: WOUND INFECTION
     Route: 065
     Dates: start: 20180129, end: 20180412
  10. MAGNESIUM ISOGLYCYRRHIZINATE [Concomitant]
     Active Substance: MAGNESIUM ISOGLYCYRRHIZINATE
     Indication: WOUND INFECTION
     Route: 065
     Dates: start: 20180129, end: 20180412
  11. MECOBALAMINE [Concomitant]
     Active Substance: METHYLCOBALAMIN
     Route: 065
     Dates: start: 20170124
  12. LACTULOSE. [Concomitant]
     Active Substance: LACTULOSE
     Indication: CONSTIPATION PROPHYLAXIS
     Route: 065
     Dates: start: 20170419
  13. LACTULOSE. [Concomitant]
     Active Substance: LACTULOSE
     Indication: CONSTIPATION
  14. CEFTAZIDIME. [Concomitant]
     Active Substance: CEFTAZIDIME
     Indication: WOUND INFECTION
     Route: 065
     Dates: start: 20180129, end: 20180412

REACTIONS (2)
  - Respiratory failure [Fatal]
  - Cerebral infarction [Fatal]

NARRATIVE: CASE EVENT DATE: 20180408
